FAERS Safety Report 4740832-3 (Version None)
Quarter: 2005Q3

REPORT INFORMATION
  Report Type: 
  Country: None (occurrence: None)
  Receive Date: 20050810
  Receipt Date: 20040924
  Transmission Date: 20060218
  Serious: No
  Sender: FDA-Public Use
  Company Number: US-GLAXOSMITHKLINE-A0527256A

PATIENT
  Age: 35 Year
  Sex: Female

DRUGS (2)
  1. TAGAMET HB 200 [Suspect]
     Indication: ULCER
     Dates: start: 20040923, end: 20040923
  2. ALKA SELTZER [Concomitant]

REACTIONS (1)
  - MIGRAINE [None]
